FAERS Safety Report 17542210 (Version 10)
Quarter: 2020Q4

REPORT INFORMATION
  Report Type: Spontaneous
  Country: CA (occurrence: CA)
  Receive Date: 20200314
  Receipt Date: 20201202
  Transmission Date: 20210113
  Serious: Yes (Other)
  Sender: FDA-Public Use
  Company Number: CA-CELLTRION INC.-2018CA020139

PATIENT

DRUGS (28)
  1. INFLECTRA [Suspect]
     Active Substance: INFLIXIMAB-DYYB
     Dosage: 650 MG, (EVERY 6 WEEKS)
     Route: 042
     Dates: start: 20180912
  2. INFLECTRA [Suspect]
     Active Substance: INFLIXIMAB-DYYB
     Dosage: 675MG (DOSE PRESCRIPTED IS 650MG EVERY 6 WEEKS)
     Route: 042
     Dates: start: 20201013
  3. INFLECTRA [Suspect]
     Active Substance: INFLIXIMAB-DYYB
     Dosage: 650 MG, (EVERY 6 WEEKS)
     Route: 042
     Dates: start: 20181205
  4. VENLAFAXINE [Concomitant]
     Active Substance: VENLAFAXINE HYDROCHLORIDE
     Dosage: 225 MG, DAILY
     Route: 048
  5. INFLECTRA [Suspect]
     Active Substance: INFLIXIMAB-DYYB
     Dosage: 650 MG, (EVERY 6 WEEKS)
     Route: 042
     Dates: start: 20200131
  6. INFLECTRA [Suspect]
     Active Substance: INFLIXIMAB-DYYB
     Dosage: 650 MG, (EVERY 6 WEEKS)
     Route: 042
     Dates: start: 20200313
  7. INFLECTRA [Suspect]
     Active Substance: INFLIXIMAB-DYYB
     Dosage: 650 MG, (EVERY 6 WEEKS)
     Route: 042
     Dates: start: 20200424
  8. INFLECTRA [Suspect]
     Active Substance: INFLIXIMAB-DYYB
     Dosage: 650 MG, (EVERY 6 WEEKS)
     Route: 042
     Dates: start: 20181024
  9. INFLECTRA [Suspect]
     Active Substance: INFLIXIMAB-DYYB
     Dosage: 650 MG, (EVERY 6 WEEKS)
     Route: 042
     Dates: start: 20190522
  10. INFLECTRA [Suspect]
     Active Substance: INFLIXIMAB-DYYB
     Dosage: 650 MG, (EVERY 6 WEEKS)
     Route: 042
     Dates: start: 20200605
  11. INFLECTRA [Suspect]
     Active Substance: INFLIXIMAB-DYYB
     Dosage: 650 MG, (EVERY 6 WEEKS)
     Route: 042
     Dates: start: 20180511
  12. INFLECTRA [Suspect]
     Active Substance: INFLIXIMAB-DYYB
     Dosage: 650 MG, (EVERY 6 WEEKS)
     Route: 042
     Dates: start: 20190226
  13. INFLECTRA [Suspect]
     Active Substance: INFLIXIMAB-DYYB
     Dosage: 650 MG, (EVERY 6 WEEKS)
     Route: 042
     Dates: start: 20190813
  14. IRBESARTAN. [Concomitant]
     Active Substance: IRBESARTAN
     Dosage: 150 MG, DAILY
     Route: 065
  15. PANTOPRAZOLE [Concomitant]
     Active Substance: PANTOPRAZOLE
     Dosage: UNK, ONCE DAILY
     Route: 048
  16. INFLECTRA [Suspect]
     Active Substance: INFLIXIMAB-DYYB
     Dosage: 650 MG, (EVERY 6 WEEKS)
     Route: 042
     Dates: start: 20170321
  17. INFLECTRA [Suspect]
     Active Substance: INFLIXIMAB-DYYB
     Dosage: 650 MG, (EVERY 6 WEEKS)
     Route: 042
     Dates: start: 20180329
  18. INFLECTRA [Suspect]
     Active Substance: INFLIXIMAB-DYYB
     Dosage: 650 MG, (EVERY 6 WEEKS)
     Route: 042
     Dates: start: 20190409
  19. INFLECTRA [Suspect]
     Active Substance: INFLIXIMAB-DYYB
     Dosage: 650 MG, (EVERY 6 WEEKS)
     Route: 042
     Dates: start: 20190704
  20. HUMIRA [Concomitant]
     Active Substance: ADALIMUMAB
     Dosage: UNKNOWN EVERY  2 WEEKS
     Route: 065
  21. CYCLOBENZAPRINE. [Concomitant]
     Active Substance: CYCLOBENZAPRINE
     Dosage: 10 MG, ONCE DAILY
     Route: 048
  22. INFLECTRA [Suspect]
     Active Substance: INFLIXIMAB-DYYB
     Indication: ANKYLOSING SPONDYLITIS
     Dosage: 600 MG, EVERY 0, 2, 6, THEN EVERY 8 WEEKS
     Route: 042
     Dates: start: 20160713, end: 20170209
  23. INFLECTRA [Suspect]
     Active Substance: INFLIXIMAB-DYYB
     Dosage: 650 MG, (EVERY 6 WEEKS)
     Route: 042
     Dates: start: 20190115
  24. STATEX [Concomitant]
     Dosage: 5 MG, AS NEEDED
     Route: 048
  25. INFLECTRA [Suspect]
     Active Substance: INFLIXIMAB-DYYB
     Dosage: 650 MG, (EVERY 6 WEEKS)
     Route: 042
     Dates: start: 20180621
  26. INFLECTRA [Suspect]
     Active Substance: INFLIXIMAB-DYYB
     Dosage: 650 MG, (EVERY 6 WEEKS)
     Route: 042
     Dates: start: 20180807
  27. INFLECTRA [Suspect]
     Active Substance: INFLIXIMAB-DYYB
     Dosage: 650 MG, (EVERY 6 WEEKS)
     Route: 042
     Dates: start: 20200716
  28. BUTRANS [Concomitant]
     Active Substance: BUPRENORPHINE
     Dosage: 10 UG, UNK
     Route: 062

REACTIONS (9)
  - Intentional product use issue [Unknown]
  - Off label use [Unknown]
  - Blood pressure fluctuation [Not Recovered/Not Resolved]
  - Weight decreased [Recovered/Resolved]
  - Blood pressure abnormal [Unknown]
  - Pulmonary embolism [Recovering/Resolving]
  - Back disorder [Not Recovered/Not Resolved]
  - Osteoarthritis [Not Recovered/Not Resolved]
  - Sleep disorder [Unknown]

NARRATIVE: CASE EVENT DATE: 20180511
